FAERS Safety Report 8139475-3 (Version None)
Quarter: 2012Q1

REPORT INFORMATION
  Report Type: 
  Country: None (occurrence: None)
  Receive Date: 20120215
  Receipt Date: 20120213
  Transmission Date: 20120608
  Serious: Yes (Hospitalization)
  Sender: FDA-Public Use
  Company Number: US-PFIZER INC-2012038660

PATIENT
  Sex: Female
  Weight: 83.9 kg

DRUGS (2)
  1. LYRICA [Suspect]
     Indication: ARTHRITIS
     Dosage: 75 MG, 2X/DAY
     Route: 048
     Dates: start: 20110401
  2. LYRICA [Suspect]
     Indication: NEURALGIA

REACTIONS (2)
  - HYPOAESTHESIA [None]
  - NECK PAIN [None]
